FAERS Safety Report 6264802-1 (Version None)
Quarter: 2009Q3

REPORT INFORMATION
  Report Type: 
  Country: None (occurrence: None)
  Receive Date: 20090710
  Receipt Date: 20090703
  Transmission Date: 20100115
  Serious: Yes (Other)
  Sender: FDA-Public Use
  Company Number: KR-B.I. PHARMACEUTICALS,INC./RIDGEFIELD-2009-DE-04659GD

PATIENT
  Age: 63 Year
  Sex: Female

DRUGS (5)
  1. RANITIDINE [Suspect]
  2. LEVOSULPIRIDE [Suspect]
     Indication: ABDOMINAL DISCOMFORT
  3. TALNIFLUMATE [Suspect]
  4. AFLOQUALONE [Suspect]
  5. CALCIUM POLYCARBOPHIL [Suspect]

REACTIONS (1)
  - CHOREA [None]
